FAERS Safety Report 14020480 (Version 1)
Quarter: 2017Q3

REPORT INFORMATION
  Report Type: Spontaneous
  Country: DK (occurrence: DK)
  Receive Date: 20170928
  Receipt Date: 20170928
  Transmission Date: 20171128
  Serious: Yes (Other)
  Sender: FDA-Public Use
  Company Number: PHHY2017DK140568

PATIENT
  Sex: Female

DRUGS (1)
  1. ADPORT [Suspect]
     Active Substance: TACROLIMUS
     Indication: PRODUCT USED FOR UNKNOWN INDICATION
     Route: 065

REACTIONS (12)
  - Syncope [Unknown]
  - Throat irritation [Unknown]
  - Autoimmune disorder [Unknown]
  - Dizziness [Unknown]
  - Visual impairment [Unknown]
  - Oedema [Unknown]
  - Weight increased [Unknown]
  - Orthostatic hypotension [Unknown]
  - Hyperacusis [Unknown]
  - Vision blurred [Unknown]
  - Sensitisation [Unknown]
  - Photophobia [Unknown]
